FAERS Safety Report 6941518 (Version 2)
Quarter: 2020Q3

REPORT INFORMATION
  Report Type: Report from Study
  Country: US (occurrence: US)
  Receive Date: 20090316
  Receipt Date: 20091127
  Transmission Date: 20201104
  Serious: Yes (Hospitalization)
  Sender: FDA-Public Use
  Company Number: US-ROCHE-619701

PATIENT
  Age: 54 Year
  Sex: Female
  Weight: 123.6 kg

DRUGS (1)
  1. IBANDRONIC ACID. [Suspect]
     Active Substance: IBANDRONIC ACID
     Dosage: TOTAL 2650 MG ADMINISTERED.
     Route: 048
     Dates: start: 20090120

REACTIONS (3)
  - Cellulitis [Recovered/Resolved]
  - Soft tissue infection [Recovered/Resolved]
  - Seroma [Recovered/Resolved]

NARRATIVE: CASE EVENT DATE: 20090220
